FAERS Safety Report 11223397 (Version 3)
Quarter: 2015Q4

REPORT INFORMATION
  Report Type: Spontaneous
  Country: JP (occurrence: JP)
  Receive Date: 20150627
  Receipt Date: 20151222
  Transmission Date: 20160304
  Serious: Yes (Death)
  Sender: FDA-Public Use
  Company Number: JP-TEVA-572501ISR

PATIENT
  Sex: Male
  Weight: 43 kg

DRUGS (6)
  1. TAKECAB [Concomitant]
     Indication: GASTROOESOPHAGEAL REFLUX DISEASE
     Dosage: 10 MILLIGRAM DAILY;
     Route: 048
     Dates: start: 20150325, end: 20150329
  2. FENTOS [Concomitant]
     Active Substance: FENTANYL
     Indication: CANCER PAIN
     Dosage: 4 MILLIGRAM DAILY;
     Route: 062
     Dates: end: 20150329
  3. E-FEN BUCCAL [Suspect]
     Active Substance: FENTANYL CITRATE
     Indication: BREAKTHROUGH PAIN
     Dosage: 50-200 MICROGRAM PER DAY
     Route: 002
     Dates: start: 20150320, end: 20150327
  4. DICLOFENAC SODIUM. [Concomitant]
     Active Substance: DICLOFENAC SODIUM
     Indication: CANCER PAIN
     Route: 054
     Dates: end: 20150328
  5. MYSLEE [Concomitant]
     Active Substance: ZOLPIDEM TARTRATE
     Indication: INSOMNIA
     Dosage: 10 MILLIGRAM DAILY;
     Route: 048
     Dates: end: 20150329
  6. DEPAS [Concomitant]
     Active Substance: ETIZOLAM
     Indication: AUTONOMIC NERVOUS SYSTEM IMBALANCE
     Dosage: .5 MILLIGRAM DAILY;
     Route: 048
     Dates: end: 20150329

REACTIONS (1)
  - Gastric cancer [Fatal]
